FAERS Safety Report 12469061 (Version 9)
Quarter: 2020Q3

REPORT INFORMATION
  Report Type: Spontaneous
  Country: IT (occurrence: IT)
  Receive Date: 20160615
  Receipt Date: 20191227
  Transmission Date: 20201104
  Serious: Yes (Other)
  Sender: FDA-Public Use
  Company Number: IT-PURDUE PHARMA-GBR-2016-0036949

PATIENT
  Age: 86 Year
  Sex: Female

DRUGS (15)
  1. OXYCODONE HYDROCHLORIDE. [Suspect]
     Active Substance: OXYCODONE HYDROCHLORIDE
     Indication: SPINAL PAIN
     Dosage: UNK
     Route: 065
  2. NIMESULID [Suspect]
     Active Substance: NIMESULIDE
     Indication: SPINAL PAIN
     Dosage: UNK
     Route: 065
  3. KETOROLAC [Suspect]
     Active Substance: KETOROLAC TROMETHAMINE
     Indication: SPINAL PAIN
     Dosage: UNK
     Route: 065
  4. ETORICOXIB. [Suspect]
     Active Substance: ETORICOXIB
     Indication: SPINAL PAIN
     Dosage: UNK
     Route: 065
  5. DULOXETINE. [Concomitant]
     Active Substance: DULOXETINE
     Indication: SPINAL PAIN
     Dosage: UNK
  6. DICLOFENAC SODIUM. [Suspect]
     Active Substance: DICLOFENAC SODIUM
     Indication: SPINAL PAIN
     Dosage: UNK
     Route: 065
  7. ETORICOXIB. [Suspect]
     Active Substance: ETORICOXIB
     Indication: BACK PAIN
     Dosage: UNK
     Route: 065
  8. TRAMADOL HYDROCHLORIDE. [Suspect]
     Active Substance: TRAMADOL HYDROCHLORIDE
     Indication: BACK PAIN
     Dosage: UNK
     Route: 065
  9. NIMESULID [Suspect]
     Active Substance: NIMESULIDE
     Indication: BACK PAIN
     Dosage: UNK
     Route: 065
  10. HYDROMORPHONE [Concomitant]
     Active Substance: HYDROMORPHONE
     Indication: SPINAL PAIN
     Route: 065
  11. OXYCODONE HYDROCHLORIDE. [Suspect]
     Active Substance: OXYCODONE HYDROCHLORIDE
     Indication: BACK PAIN
  12. KETOROLAC [Suspect]
     Active Substance: KETOROLAC TROMETHAMINE
     Indication: BACK PAIN
     Dosage: UNK
     Route: 065
  13. TRAMADOL HYDROCHLORIDE. [Suspect]
     Active Substance: TRAMADOL HYDROCHLORIDE
     Indication: SPINAL PAIN
     Dosage: UNK
     Route: 065
  14. DICLOFENAC SODIUM. [Suspect]
     Active Substance: DICLOFENAC SODIUM
     Indication: BACK PAIN
  15. PREGABALIN. [Concomitant]
     Active Substance: PREGABALIN
     Indication: SPINAL PAIN
     Route: 065

REACTIONS (6)
  - Speech disorder [Recovered/Resolved]
  - Disorientation [Recovered/Resolved]
  - Iron deficiency anaemia [Recovered/Resolved]
  - Blood creatinine increased [Recovered/Resolved]
  - Blood urea increased [Recovered/Resolved]
  - Drug abuse [Unknown]
